FAERS Safety Report 4893723-1 (Version None)
Quarter: 2006Q1

REPORT INFORMATION
  Report Type: 
  Country: None (occurrence: None)
  Receive Date: 20060127
  Receipt Date: 20060116
  Transmission Date: 20060701
  Serious: Yes (Hospitalization)
  Sender: FDA-Public Use
  Company Number: PT-GLAXOSMITHKLINE-B0407097A

PATIENT
  Age: 74 Year
  Sex: Female

DRUGS (5)
  1. FONDAPARINUX SODIUM [Suspect]
     Indication: ANGINA UNSTABLE
     Dosage: 2.5MG PER DAY
     Route: 058
     Dates: start: 20040214, end: 20040217
  2. ASPIRIN [Concomitant]
  3. CLOPIDOGREL [Concomitant]
  4. ACE INHIBITOR [Concomitant]
  5. DIURETICS [Concomitant]

REACTIONS (1)
  - RENAL IMPAIRMENT [None]
